FAERS Safety Report 25122025 (Version 4)
Quarter: 2025Q2

REPORT INFORMATION
  Report Type: Report from Study
  Country: US (occurrence: US)
  Receive Date: 20250326
  Receipt Date: 20250521
  Transmission Date: 20250717
  Serious: No
  Sender: ACADIA PHARMACEUTICALS
  Company Number: US-ACADIA PHARMACEUTICALS INC.-ACA-2025-TRF-003204

PATIENT
  Sex: Female

DRUGS (4)
  1. DAYBUE [Suspect]
     Active Substance: TROFINETIDE
     Indication: Rett syndrome
     Dosage: 25 MILLILITER, BID
  2. DAYBUE [Suspect]
     Active Substance: TROFINETIDE
     Dosage: 35 MILLILITER, BID
  3. DAYBUE [Suspect]
     Active Substance: TROFINETIDE
     Dosage: 25 MILLILITER, BID
  4. DAYBUE [Suspect]
     Active Substance: TROFINETIDE
     Dosage: 50 MILLILITER, BID

REACTIONS (2)
  - Diarrhoea [Not Recovered/Not Resolved]
  - Underdose [Not Recovered/Not Resolved]
